FAERS Safety Report 8210905-1 (Version None)
Quarter: 2012Q1

REPORT INFORMATION
  Report Type: 
  Country: None (occurrence: None)
  Receive Date: 20120315
  Receipt Date: 20120307
  Transmission Date: 20120608
  Serious: Yes (Hospitalization)
  Sender: FDA-Public Use
  Company Number: US-BAYER-2011-040449

PATIENT
  Age: 33 Year
  Sex: Female
  Weight: 58.957 kg

DRUGS (11)
  1. YASMIN [Suspect]
  2. FIORINAL [Concomitant]
     Indication: MIGRAINE
     Dosage: 40 MG, UNK
     Dates: start: 20070101, end: 20090101
  3. PROZAC [Concomitant]
     Indication: DEPRESSION
     Dosage: UNK
     Dates: start: 20000101
  4. YASMIN [Suspect]
     Indication: CONTRACEPTION
  5. SYNTHROID [Concomitant]
     Indication: BLOOD THYROID STIMULATING HORMONE DECREASED
     Dosage: 100 MG, UNK
     Dates: start: 20040101
  6. PERCOCET [Concomitant]
     Indication: PAIN
     Dosage: 10 AS NEEDED
     Dates: start: 20040101, end: 20080101
  7. YASMIN [Suspect]
     Indication: ACNE
     Dosage: UNK
     Route: 048
     Dates: start: 20060101, end: 20080101
  8. YASMIN [Suspect]
     Indication: PREMENSTRUAL SYNDROME
  9. YASMIN [Suspect]
     Indication: MENSTRUAL DISORDER
  10. CELEXA [Concomitant]
  11. FLUOXETINE HCL [Concomitant]
     Indication: DEPRESSION
     Dosage: UNK
     Dates: start: 20060101, end: 20070101

REACTIONS (4)
  - CHOLELITHIASIS [None]
  - ABDOMINAL PAIN [None]
  - CHOLECYSTITIS CHRONIC [None]
  - PAIN [None]
